FAERS Safety Report 20546650 (Version 3)
Quarter: 2023Q1

REPORT INFORMATION
  Report Type: Report from Study
  Country: FR (occurrence: FR)
  Receive Date: 20220303
  Receipt Date: 20230227
  Transmission Date: 20230418
  Serious: Yes (Hospitalization)
  Sender: FDA-Public Use
  Company Number: FR-EORTC-1825-37-1

PATIENT
  Age: 60 Year
  Sex: Female
  Weight: 81 kg

DRUGS (2)
  1. LORLATINIB [Suspect]
     Active Substance: LORLATINIB
     Indication: Non-small cell lung cancer
     Dosage: 25 MG 4 TIMES A DAY
     Route: 048
     Dates: start: 20211223, end: 20220216
  2. LORLATINIB [Suspect]
     Active Substance: LORLATINIB
     Dosage: UNK
     Route: 065
     Dates: start: 20220304

REACTIONS (1)
  - Pericardial effusion [Recovered/Resolved]

NARRATIVE: CASE EVENT DATE: 20220217
